FAERS Safety Report 7183596-9 (Version None)
Quarter: 2010Q4

REPORT INFORMATION
  Report Type: 
  Country: None (occurrence: None)
  Receive Date: 20101220
  Receipt Date: 20101220
  Transmission Date: 20110411
  Serious: Yes (Hospitalization)
  Sender: FDA-Public Use
  Company Number: None

PATIENT
  Age: 47 Year
  Sex: Male
  Weight: 81.8 kg

DRUGS (3)
  1. ZOLPIDEM [Suspect]
     Indication: INSOMNIA
     Dosage: ONE TABLET, 10 MG PER NIGHT ORAL
     Route: 048
     Dates: start: 20101213
  2. ZOLPIDEM [Suspect]
     Indication: SLEEP APNOEA SYNDROME
     Dosage: ONE TABLET, 10 MG PER NIGHT ORAL
     Route: 048
     Dates: start: 20101213
  3. FLEXERIL [Concomitant]

REACTIONS (3)
  - ABNORMAL BEHAVIOUR [None]
  - AMNESIA [None]
  - OVERDOSE [None]
